FAERS Safety Report 6885951-0 (Version None)
Quarter: 2010Q3

REPORT INFORMATION
  Report Type: 
  Country: None (occurrence: None)
  Receive Date: 20100729
  Receipt Date: 20080311
  Transmission Date: 20110219
  Serious: Yes (Other)
  Sender: FDA-Public Use
  Company Number: US-PFIZER INC-2008022770

PATIENT
  Sex: Female
  Weight: 95.454 kg

DRUGS (16)
  1. CELEBREX [Suspect]
     Indication: ARTHRALGIA
  2. SYNTHROID [Concomitant]
  3. ACIPHEX [Concomitant]
  4. NASONEX [Concomitant]
  5. HYDROCHLOROTHIAZIDE [Concomitant]
  6. AMLODIPINE [Concomitant]
  7. FLECAINIDE ACETATE [Concomitant]
  8. METOPROLOL TARTRATE [Concomitant]
  9. MONTELUKAST [Concomitant]
  10. PLAVIX [Concomitant]
  11. VYTORIN [Concomitant]
  12. FAMOTIDINE [Concomitant]
  13. MIRAPEX [Concomitant]
  14. VITAMIN B6 [Concomitant]
  15. VITAMIN B-12 [Concomitant]
  16. VIVELLE [Concomitant]
     Dosage: 1 EVERY 2 WEEKS

REACTIONS (4)
  - ABNORMAL FAECES [None]
  - FALL [None]
  - OEDEMA PERIPHERAL [None]
  - PAIN IN EXTREMITY [None]
